FAERS Safety Report 7396553-4 (Version None)
Quarter: 2011Q1

REPORT INFORMATION
  Report Type: 
  Country: None (occurrence: None)
  Receive Date: 20110331
  Receipt Date: 20110331
  Transmission Date: 20110831
  Serious: Yes (Other)
  Sender: FDA-Public Use
  Company Number: None

PATIENT
  Sex: Male
  Weight: 89.8122 kg

DRUGS (2)
  1. ARICEPT [Suspect]
     Indication: DEMENTIA
     Dosage: ARICEPT 5 ONCE QD ORAL
     Route: 048
     Dates: start: 20101126, end: 20101230
  2. ARICEPT [Suspect]
     Indication: DEMENTIA ALZHEIMER'S TYPE
     Dosage: ARICEPT 5 ONCE QD ORAL
     Route: 048
     Dates: start: 20101126, end: 20101230

REACTIONS (4)
  - NAUSEA [None]
  - VOMITING [None]
  - DYSPNOEA [None]
  - HEADACHE [None]
